FAERS Safety Report 5428127-6 (Version None)
Quarter: 2007Q3

REPORT INFORMATION
  Report Type: 
  Country: None (occurrence: None)
  Receive Date: 20070828
  Receipt Date: 20070824
  Transmission Date: 20080115
  Serious: No
  Sender: FDA-Public Use
  Company Number: US-BOEHRINGER INGELHEIM PHARMACEUTICALS, INC.-2007-BP-18001BP

PATIENT
  Sex: Male

DRUGS (3)
  1. SPIRIVA [Suspect]
     Indication: CHRONIC OBSTRUCTIVE PULMONARY DISEASE
     Route: 055
     Dates: start: 20040101
  2. LISINOPRIL [Suspect]
     Indication: HYPERTENSION
     Route: 048
     Dates: start: 20070712, end: 20070716
  3. ENALAPRIL MALEATE [Suspect]
     Indication: HYPERTENSION
     Route: 048
     Dates: start: 20070712, end: 20070716

REACTIONS (6)
  - DECREASED APPETITE [None]
  - DYSPHONIA [None]
  - DYSURIA [None]
  - LARYNGITIS [None]
  - PROSTATIC SPECIFIC ANTIGEN INCREASED [None]
  - THROAT TIGHTNESS [None]
